FAERS Safety Report 4332761-4 (Version None)
Quarter: 2004Q1

REPORT INFORMATION
  Report Type: 
  Country: None (occurrence: None)
  Receive Date: 20040330
  Receipt Date: 20040315
  Transmission Date: 20041129
  Serious: Yes (Other)
  Sender: FDA-Public Use
  Company Number: 188148

PATIENT
  Age: 40 Year
  Sex: Female
  Weight: 74 kg

DRUGS (2)
  1. AVONEX [Suspect]
     Indication: MULTIPLE SCLEROSIS
     Dosage: 30 MCG QW IM
     Route: 030
     Dates: start: 19960101, end: 20031122
  2. PLACEBO [Concomitant]

REACTIONS (11)
  - DERMATITIS EXFOLIATIVE [None]
  - INJECTION SITE ERYTHEMA [None]
  - MARKEDLY REDUCED DIETARY INTAKE [None]
  - OLIGURIA [None]
  - PAIN [None]
  - PHARYNGOLARYNGEAL PAIN [None]
  - PRURITUS [None]
  - SUBCUTANEOUS ABSCESS [None]
  - SWOLLEN TONGUE [None]
  - TONGUE DISORDER [None]
  - VAGINAL DISORDER [None]
